FAERS Safety Report 4866090-7 (Version None)
Quarter: 2005Q4

REPORT INFORMATION
  Report Type: 
  Country: None (occurrence: None)
  Receive Date: 20051221
  Receipt Date: 20051205
  Transmission Date: 20060501
  Serious: Yes (Hospitalization)
  Sender: FDA-Public Use
  Company Number: 2005BI011225

PATIENT
  Age: 26 Year
  Sex: Female

DRUGS (5)
  1. NATALIZUMAB [Suspect]
     Indication: MULTIPLE SCLEROSIS
     Dosage: UNKNOWN; IV
     Route: 042
     Dates: start: 20050112, end: 20050112
  2. REBIF [Concomitant]
  3. KEPPRA [Concomitant]
  4. EFFEXOR [Concomitant]
  5. SOLU-MEDROL [Concomitant]

REACTIONS (8)
  - CAESAREAN SECTION [None]
  - DRUG EXPOSURE BEFORE PREGNANCY [None]
  - HEADACHE [None]
  - MALAISE [None]
  - MIGRAINE [None]
  - MOBILITY DECREASED [None]
  - PREMATURE LABOUR [None]
  - VAGINAL HAEMORRHAGE [None]
